FAERS Safety Report 23896446 (Version 1)
Quarter: 2024Q2

REPORT INFORMATION
  Report Type: Spontaneous
  Country: US (occurrence: US)
  Receive Date: 20240524
  Receipt Date: 20240524
  Transmission Date: 20240716
  Serious: Yes (Other)
  Sender: FDA-Public Use
  Company Number: US-PFIZER INC-PV202400065630

PATIENT
  Age: 31 Year
  Sex: Male

DRUGS (3)
  1. MILRINONE [Suspect]
     Active Substance: MILRINONE
     Indication: Subarachnoid haemorrhage
     Dosage: UNK
     Route: 013
  2. MILRINONE [Suspect]
     Active Substance: MILRINONE
     Indication: Vasospasm
  3. SOLU-MEDROL [Concomitant]
     Active Substance: METHYLPREDNISOLONE SODIUM SUCCINATE
     Indication: Vasculitis
     Dosage: UNK

REACTIONS (1)
  - Cerebral haemorrhage [Unknown]
